FAERS Safety Report 7434224-6 (Version None)
Quarter: 2011Q2

REPORT INFORMATION
  Report Type: 
  Country: None (occurrence: None)
  Receive Date: 20110425
  Receipt Date: 20110419
  Transmission Date: 20111010
  Serious: No
  Sender: FDA-Public Use
  Company Number: US-PFIZER INC-2011085774

PATIENT
  Sex: Female
  Weight: 63 kg

DRUGS (2)
  1. LORTAB [Concomitant]
     Indication: PAIN
     Dosage: UNK
  2. LYRICA [Suspect]
     Indication: NEURALGIA
     Dosage: 75 MG, 2X/DAY
     Route: 048
     Dates: start: 20110418

REACTIONS (1)
  - EUPHORIC MOOD [None]
